FAERS Safety Report 4764532-9 (Version None)
Quarter: 2005Q3

REPORT INFORMATION
  Report Type: 
  Country: None (occurrence: None)
  Receive Date: 20050906
  Receipt Date: 20050825
  Transmission Date: 20060218
  Serious: Yes (Other)
  Sender: FDA-Public Use
  Company Number: 2005119944

PATIENT
  Age: 39 Year
  Sex: Male
  Weight: 54.4316 kg

DRUGS (1)
  1. UNISOM [Suspect]
     Indication: INSOMNIA
     Dosage: 30 TABS ONCE, ORAL
     Route: 048
     Dates: start: 20050820, end: 20050820

REACTIONS (2)
  - AMNESIA [None]
  - TONGUE BITING [None]
